FAERS Safety Report 6557419-2 (Version None)
Quarter: 2010Q1

REPORT INFORMATION
  Report Type: 
  Country: None (occurrence: None)
  Receive Date: 20100129
  Receipt Date: 20100119
  Transmission Date: 20100710
  Serious: Yes (Hospitalization)
  Sender: FDA-Public Use
  Company Number: SE-JNJFOC-20100108088

PATIENT
  Age: 18 Year
  Sex: Male

DRUGS (6)
  1. REMICADE [Suspect]
     Indication: COLITIS ULCERATIVE
     Dosage: 5MG/KG TO 10MG/KG
     Route: 042
  2. REMICADE [Suspect]
     Route: 042
  3. AZATHIOPRINE [Concomitant]
  4. CLAFORAN [Concomitant]
  5. DOXYFERM [Concomitant]
  6. PREDNISOLONE [Concomitant]

REACTIONS (2)
  - COLITIS ULCERATIVE [None]
  - TUBERCULOSIS [None]
